FAERS Safety Report 23508846 (Version 1)
Quarter: 2024Q1

REPORT INFORMATION
  Report Type: Spontaneous
  Country: FR (occurrence: None)
  Receive Date: 20240209
  Receipt Date: 20240209
  Transmission Date: 20240410
  Serious: Yes (Hospitalization)
  Sender: FDA-Public Use
  Company Number: 2024A027657

PATIENT
  Age: 96 Year
  Sex: Female
  Weight: 49 kg

DRUGS (2)
  1. DAPAGLIFLOZIN [Suspect]
     Active Substance: DAPAGLIFLOZIN
     Indication: Cardiac failure
     Dosage: 1.0DF UNKNOWN
     Route: 048
     Dates: start: 20231205
  2. CEFIXIME [Suspect]
     Active Substance: CEFIXIME
     Indication: Infection
     Dosage: 2.0DF UNKNOWN
     Route: 048
     Dates: start: 20231120, end: 20231122

REACTIONS (1)
  - Purpura [Recovering/Resolving]

NARRATIVE: CASE EVENT DATE: 20231121
